FAERS Safety Report 24055442 (Version 4)
Quarter: 2024Q4

REPORT INFORMATION
  Report Type: Spontaneous
  Country: TR (occurrence: TR)
  Receive Date: 20240705
  Receipt Date: 20241017
  Transmission Date: 20250115
  Serious: No
  Sender: PFIZER
  Company Number: TR-PFIZER INC-PV202400086589

PATIENT

DRUGS (1)
  1. ENBREL [Suspect]
     Active Substance: ETANERCEPT
     Dosage: UNK

REACTIONS (2)
  - Injection site pain [Unknown]
  - Injection site bruising [Unknown]
